FAERS Safety Report 14755771 (Version 1)
Quarter: 2018Q2

REPORT INFORMATION
  Report Type: Spontaneous
  Country: US (occurrence: US)
  Receive Date: 20180413
  Receipt Date: 20180413
  Transmission Date: 20180711
  Serious: No
  Sender: FDA-Public Use
  Company Number: US-PFIZER INC-2018147487

PATIENT
  Age: 63 Year
  Sex: Male
  Weight: 78.93 kg

DRUGS (4)
  1. DILANTIN [Suspect]
     Active Substance: PHENYTOIN
     Indication: SEIZURE
     Dosage: 300 MG, UNK
  2. DILANTIN [Suspect]
     Active Substance: PHENYTOIN
     Dosage: UNK
  3. DILANTIN [Suspect]
     Active Substance: PHENYTOIN
     Dosage: 200 MG, UNK
     Dates: start: 1989
  4. DILANTIN [Suspect]
     Active Substance: PHENYTOIN
     Dosage: 30 MG, 1X/DAY
     Route: 048

REACTIONS (4)
  - Muscular weakness [Unknown]
  - Neuropathy peripheral [Not Recovered/Not Resolved]
  - Anticonvulsant drug level increased [Unknown]
  - Overdose [Unknown]

NARRATIVE: CASE EVENT DATE: 1989
